FAERS Safety Report 5452352-1 (Version None)
Quarter: 2007Q3

REPORT INFORMATION
  Report Type: 
  Country: None (occurrence: None)
  Receive Date: 20070912
  Receipt Date: 20070912
  Transmission Date: 20080115
  Serious: Yes (Disabling, Other)
  Sender: FDA-Public Use
  Company Number: None

PATIENT
  Age: 29 Year
  Sex: Female
  Weight: 61.2356 kg

DRUGS (1)
  1. NUVARING [Suspect]
     Indication: DYSPLASIA
     Dosage: 3 WEEKS A MONTH VAG
     Route: 067
     Dates: start: 20030501, end: 20040501

REACTIONS (1)
  - CERVICAL DYSPLASIA [None]
